FAERS Safety Report 5400211-2 (Version None)
Quarter: 2007Q3

REPORT INFORMATION
  Report Type: 
  Country: None (occurrence: None)
  Receive Date: 20070725
  Receipt Date: 20070713
  Transmission Date: 20080115
  Serious: Yes (Hospitalization)
  Sender: FDA-Public Use
  Company Number: 2007-160606-NL

PATIENT
  Age: 37 Year
  Sex: Female

DRUGS (1)
  1. NUVARING [Suspect]
     Dosage: DF, VAGINAL
     Route: 067
     Dates: start: 20060501, end: 20070513

REACTIONS (2)
  - AMENORRHOEA [None]
  - UTERINE HAEMORRHAGE [None]
